FAERS Safety Report 10489404 (Version 1)
Quarter: 2014Q3

REPORT INFORMATION
  Report Type: Spontaneous
  Country: KR (occurrence: None)
  Receive Date: 20140930
  Receipt Date: 20140930
  Transmission Date: 20150326
  Serious: Yes (Life-Threatening, Hospitalization)
  Sender: FDA-Public Use
  Company Number: 2014SGN01167

PATIENT
  Age: 76 Year
  Sex: Male
  Weight: 53.8 kg

DRUGS (8)
  1. CYCLOPHOSPHAMIDE (CYCLOPHOSPHAMIDE) [Suspect]
     Active Substance: CYCLOPHOSPHAMIDE
     Indication: ANAPLASTIC LARGE-CELL LYMPHOMA
     Dosage: 750 MG/M2, Q21D, INTRAVNEOUS
     Route: 042
     Dates: start: 20140901, end: 20140901
  2. PREDNISONE (PREDNISONE) [Suspect]
     Active Substance: PREDNISONE
     Indication: ANAPLASTIC LARGE-CELL LYMPHOMA
     Dosage: 100 MG, QCYCLE, ORAL
     Route: 048
     Dates: start: 20140901, end: 20140902
  3. APREPITANT [Concomitant]
     Active Substance: APREPITANT
  4. PALONOSETRON [Concomitant]
     Active Substance: PALONOSETRON
  5. RANITIDINE(RANITIDINE HYDROCHLORIDE) [Concomitant]
  6. DOXORUBICIN (DOXORUBICIN) INJECTION [Suspect]
     Active Substance: DOXORUBICIN
     Indication: ANAPLASTIC LARGE-CELL LYMPHOMA
     Dosage: 50 MG/M2, Q21D, INTRAVENEOUS
     Route: 042
     Dates: start: 20140901, end: 20140901
  7. STUDY DRUG [Suspect]
     Active Substance: INVESTIGATIONAL PRODUCT
     Indication: ANAPLASTIC LARGE-CELL LYMPHOMA
     Dosage: BLINDED INFORMATION WITHHELD
     Dates: start: 20140901, end: 20140901
  8. MEGESTROL ACETATE(MEGESTROL ACETATE) [Concomitant]

REACTIONS (9)
  - Pulse absent [None]
  - Respiratory arrest [None]
  - Septic shock [None]
  - Nausea [None]
  - Hypovolaemia [None]
  - Neutropenia [None]
  - Colitis [None]
  - Abdominal pain [None]
  - Asphyxia [None]

NARRATIVE: CASE EVENT DATE: 20140909
